FAERS Safety Report 6213416-8 (Version None)
Quarter: 2009Q2

REPORT INFORMATION
  Report Type: 
  Country: None (occurrence: None)
  Receive Date: 20090603
  Receipt Date: 20090525
  Transmission Date: 20091009
  Serious: Yes (Death, Life-Threatening)
  Sender: FDA-Public Use
  Company Number: NL-SANOFI-SYNTHELABO-A01200905594

PATIENT
  Sex: Male

DRUGS (1)
  1. ELIGARD [Suspect]
     Dosage: ONCE EVERY 6 MONTHS 45 MG
     Route: 058
     Dates: start: 20080812

REACTIONS (8)
  - ASTHENIA [None]
  - BLOOD TESTOSTERONE DECREASED [None]
  - DEPRESSION [None]
  - DYSPNOEA [None]
  - FATIGUE [None]
  - HOT FLUSH [None]
  - PLEURAL EFFUSION [None]
  - PULMONARY SEPSIS [None]
